FAERS Safety Report 6361289-5 (Version None)
Quarter: 2009Q3

REPORT INFORMATION
  Report Type: 
  Country: None (occurrence: None)
  Receive Date: 20090918
  Receipt Date: 20090914
  Transmission Date: 20100115
  Serious: Yes (Hospitalization)
  Sender: FDA-Public Use
  Company Number: IT-AVENTIS-200915260EU

PATIENT
  Age: 52 Year
  Sex: Female

DRUGS (3)
  1. FUROSEMIDE [Suspect]
     Route: 048
     Dates: start: 20090801, end: 20090807
  2. DOXAZOSIN MESYLATE [Suspect]
     Route: 048
     Dates: start: 20090801, end: 20090807
  3. ALLOPURINOL [Suspect]
     Indication: CARDIOMYOPATHY
     Route: 048
     Dates: start: 20090801, end: 20090807

REACTIONS (1)
  - TOXIC EPIDERMAL NECROLYSIS [None]
